FAERS Safety Report 4947227-8 (Version None)
Quarter: 2006Q1

REPORT INFORMATION
  Report Type: 
  Country: None (occurrence: None)
  Receive Date: 20060313
  Receipt Date: 20060227
  Transmission Date: 20060701
  Serious: Yes (Other)
  Sender: FDA-Public Use
  Company Number: HQWYE048628FEB06

PATIENT
  Age: 30 Year
  Sex: Female

DRUGS (1)
  1. ALESSE [Suspect]
     Indication: CONTRACEPTION
     Dosage: 1 TABLET 1X PER 1 DAY, ORAL
     Route: 048
     Dates: start: 20060205

REACTIONS (6)
  - DIZZINESS [None]
  - DYSSTASIA [None]
  - HEADACHE [None]
  - MENORRHAGIA [None]
  - SYNCOPE [None]
  - VISION BLURRED [None]
